FAERS Safety Report 26168984 (Version 1)
Quarter: 2025Q4

REPORT INFORMATION
  Report Type: Spontaneous
  Country: US (occurrence: US)
  Receive Date: 20251217
  Receipt Date: 20251217
  Transmission Date: 20260118
  Serious: No
  Sender: PACIRA
  Company Number: US-ORG100016242-2025000406

PATIENT
  Sex: Male

DRUGS (3)
  1. EXPAREL [Suspect]
     Active Substance: BUPIVACAINE
     Indication: Limb operation
     Dosage: 10 ML OF IN EACH BLOCK FOR A TOTAL OF 20 ML
     Route: 050
     Dates: start: 20251008, end: 20251008
  2. BUPIVACAINE [Concomitant]
     Active Substance: BUPIVACAINE
     Indication: Limb operation
     Dosage: 10 ML TO EACH BLOCK FOR A TOTAL OF 20 ML
     Route: 050
     Dates: start: 20251008, end: 20251008
  3. ROPIVACAINE [Suspect]
     Active Substance: ROPIVACAINE
     Indication: Local anaesthesia
     Route: 065

REACTIONS (2)
  - Therapeutic response shortened [Unknown]
  - Procedural pain [Unknown]

NARRATIVE: CASE EVENT DATE: 20251009
